FAERS Safety Report 7982795-3 (Version None)
Quarter: 2011Q4

REPORT INFORMATION
  Report Type: 
  Country: None (occurrence: None)
  Receive Date: 20111215
  Receipt Date: 20111206
  Transmission Date: 20120403
  Serious: Yes (Other)
  Sender: FDA-Public Use
  Company Number: US-BAYER-2011-056016

PATIENT
  Age: 44 Year
  Sex: Female
  Weight: 102 kg

DRUGS (7)
  1. LEVOTHYROXINE SODIUM [Concomitant]
  2. ZOLOFT [Concomitant]
  3. LIPITOR [Concomitant]
  4. YASMIN [Suspect]
     Indication: ACNE
     Dosage: UNK
     Dates: start: 20030901, end: 20040401
  5. YASMIN [Suspect]
     Indication: GENITAL HAEMORRHAGE
  6. YASMIN [Suspect]
     Indication: MENOPAUSE
  7. FOLIC ACID [Concomitant]

REACTIONS (7)
  - INJURY [None]
  - EMOTIONAL DISTRESS [None]
  - ANXIETY [None]
  - PULMONARY EMBOLISM [None]
  - CHEST PAIN [None]
  - PAIN [None]
  - DYSPNOEA [None]
